FAERS Safety Report 7573845-7 (Version None)
Quarter: 2011Q2

REPORT INFORMATION
  Report Type: 
  Country: None (occurrence: None)
  Receive Date: 20110627
  Receipt Date: 20110520
  Transmission Date: 20111010
  Serious: Yes (Other)
  Sender: FDA-Public Use
  Company Number: A0929355A

PATIENT
  Age: 73 Year
  Sex: Female

DRUGS (1)
  1. TYKERB [Suspect]
     Dosage: 1250MG PER DAY
     Route: 065

REACTIONS (4)
  - HYPOAESTHESIA FACIAL [None]
  - DIARRHOEA [None]
  - NEOPLASM PROGRESSION [None]
  - DIPLOPIA [None]
